FAERS Safety Report 22074684 (Version 2)
Quarter: 2023Q2

REPORT INFORMATION
  Report Type: Spontaneous
  Country: DE (occurrence: None)
  Receive Date: 20230308
  Receipt Date: 20230504
  Transmission Date: 20230722
  Serious: Yes (Other)
  Sender: FDA-Public Use
  Company Number: 2023A053033

PATIENT
  Age: 79 Year
  Sex: Male
  Weight: 80 kg

DRUGS (6)
  1. DAPAGLIFLOZIN [Suspect]
     Active Substance: DAPAGLIFLOZIN
     Indication: Type 2 diabetes mellitus
     Route: 048
     Dates: start: 20211210, end: 20220703
  2. SIMVASTATIN [Concomitant]
     Active Substance: SIMVASTATIN
     Route: 048
  3. JANUMET [Concomitant]
     Active Substance: METFORMIN HYDROCHLORIDE\SITAGLIPTIN PHOSPHATE
     Dosage: 50/10000
  4. TOUJEO [Concomitant]
     Active Substance: INSULIN GLARGINE
     Dosage: 0-0-12-0 ACCORDING TO PLAN
  5. BENFOTIAMINE [Concomitant]
     Active Substance: BENFOTIAMINE
     Dosage: 300 MG, 1-0-0-0
  6. METFORMIN HYDROCHLORIDE [Concomitant]
     Active Substance: METFORMIN HYDROCHLORIDE
     Dosage: 500 MG TABL 1-0-0-0 PCS
     Route: 048

REACTIONS (3)
  - Basal cell carcinoma [Unknown]
  - Hypoglycaemia [Recovered/Resolved]
  - Dysuria [Recovered/Resolved]

NARRATIVE: CASE EVENT DATE: 20220501
